FAERS Safety Report 8226844-6 (Version None)
Quarter: 2012Q1

REPORT INFORMATION
  Report Type: 
  Country: None (occurrence: None)
  Receive Date: 20120322
  Receipt Date: 20120314
  Transmission Date: 20120608
  Serious: Yes (Hospitalization)
  Sender: FDA-Public Use
  Company Number: US-BAYER-2011-106611

PATIENT
  Age: 17 Year
  Sex: Female
  Weight: 61.224 kg

DRUGS (8)
  1. RANITIDINE [Concomitant]
     Dosage: UNK
     Dates: start: 20090924
  2. LORATADINE [Concomitant]
     Dosage: 10 MG, UNK
     Dates: start: 20091023, end: 20091026
  3. MULTI-VITAMIN [Concomitant]
     Dosage: UNK
     Dates: start: 20091023
  4. PRILOSEC [Concomitant]
     Dosage: 20 MG, QD
     Dates: start: 20091016
  5. ACETAMINOPHEN [Concomitant]
     Dosage: UNK UNK, PRN
     Dates: start: 20091020
  6. YAZ [Suspect]
     Dosage: UNK
     Dates: start: 20070801, end: 20091001
  7. TAMIFLU [Concomitant]
     Dosage: 75 MG, BID
     Dates: start: 20091020
  8. LORATADINE [Concomitant]
     Dosage: 10 MG, QD
     Dates: start: 20090806, end: 20091015

REACTIONS (12)
  - INJURY [None]
  - CHOLECYSTECTOMY [None]
  - SCAR [None]
  - ABDOMINAL DISTENSION [None]
  - DEPRESSION [None]
  - ANXIETY [None]
  - CHOLECYSTITIS CHRONIC [None]
  - FLATULENCE [None]
  - CONSTIPATION [None]
  - EMOTIONAL DISTRESS [None]
  - DYSPEPSIA [None]
  - DIARRHOEA [None]
